FAERS Safety Report 17670203 (Version 3)
Quarter: 2020Q2

REPORT INFORMATION
  Report Type: Spontaneous
  Country: AU (occurrence: AU)
  Receive Date: 20200415
  Receipt Date: 20200518
  Transmission Date: 20200713
  Serious: Yes (Hospitalization, Other)
  Sender: FDA-Public Use
  Company Number: AU-AMGEN-AUSSP2020058883

PATIENT
  Age: 82 Year
  Sex: Female

DRUGS (2)
  1. ARANESP [Suspect]
     Active Substance: DARBEPOETIN ALFA
     Indication: RENAL DISORDER
     Dosage: 20 MICROGRAM
     Route: 065
     Dates: start: 2016
  2. ARANESP [Suspect]
     Active Substance: DARBEPOETIN ALFA
     Indication: RED BLOOD CELL COUNT DECREASED

REACTIONS (9)
  - Traumatic intracranial haemorrhage [Unknown]
  - Fall [Unknown]
  - Weight decreased [Recovering/Resolving]
  - Pneumonia [Unknown]
  - Device difficult to use [Unknown]
  - Feeling abnormal [Recovering/Resolving]
  - Functional gastrointestinal disorder [Unknown]
  - Malaise [Recovering/Resolving]
  - Diarrhoea [Unknown]

NARRATIVE: CASE EVENT DATE: 2019
